FAERS Safety Report 19570644 (Version 1)
Quarter: 2021Q3

REPORT INFORMATION
  Report Type: Spontaneous
  Country: US (occurrence: US)
  Receive Date: 20210715
  Receipt Date: 20210715
  Transmission Date: 20211014
  Serious: No
  Sender: FDA-Public Use
  Company Number: US-SA-2021SA229160

PATIENT
  Age: 52 Year
  Sex: Female

DRUGS (1)
  1. LANTUS SOLOSTAR [Suspect]
     Active Substance: INSULIN GLARGINE
     Indication: TYPE 2 DIABETES MELLITUS
     Dosage: DRUG STRUCTURE DOSAGE : 60 AM 60 PM DRUG INTERVAL DOSAGE : TWICE DAILY;LANTUS SOLOSTAR 100 U/ML PREF
     Route: 065
     Dates: start: 2012

REACTIONS (1)
  - Inappropriate schedule of product administration [Unknown]
